FAERS Safety Report 7215068-7 (Version None)
Quarter: 2011Q1

REPORT INFORMATION
  Report Type: 
  Country: None (occurrence: None)
  Receive Date: 20110107
  Receipt Date: 20100804
  Transmission Date: 20110831
  Serious: No
  Sender: FDA-Public Use
  Company Number: A0874009A

PATIENT
  Age: 65 Year
  Sex: Male

DRUGS (6)
  1. LOVAZA [Suspect]
     Dosage: 2MG TWICE PER DAY
     Route: 048
     Dates: start: 20100601
  2. TYLENOL (CAPLET) [Concomitant]
  3. CRESTOR [Concomitant]
  4. FIBERCON [Concomitant]
  5. MULTI-VITAMIN [Concomitant]
  6. RAMIPRIL [Concomitant]

REACTIONS (2)
  - BACK PAIN [None]
  - DRUG INTERACTION [None]
